FAERS Safety Report 19397926 (Version 1)
Quarter: 2021Q2

REPORT INFORMATION
  Report Type: Spontaneous
  Country: US (occurrence: US)
  Receive Date: 20210609
  Receipt Date: 20210609
  Transmission Date: 20210717
  Serious: No
  Sender: FDA-Public Use
  Company Number: None

PATIENT
  Sex: Female

DRUGS (15)
  1. ONDANSETRON 8 MG TAB [Concomitant]
  2. DOCUSATE 100 MG CAP [Concomitant]
  3. CITALOPRAM 40 MG TAB [Concomitant]
  4. NEUPOGEN 480 [Concomitant]
  5. TUKYSA [Concomitant]
     Active Substance: TUCATINIB
  6. ESOMEPRAZOLE 40 MG CAP [Concomitant]
  7. MIRAPEX 0.125 MG TAB [Concomitant]
  8. MORPHINE SULFATE ER 15 MG TAB [Concomitant]
  9. CAPECITABINE 500 MG TAB [Suspect]
     Active Substance: CAPECITABINE
     Indication: BREAST CANCER
     Route: 048
     Dates: start: 20200828
  10. MAGIC MOUTHWASH [Concomitant]
     Active Substance: DIPHENHYDRAMINE HYDROCHLORIDE\LIDOCAINE HYDROCHLORIDE\NYSTATIN
  11. PROCHLORPERAZINE 10 MG TAB [Concomitant]
  12. TRIAMCINOLONE 0.1% CREAM [Concomitant]
     Active Substance: TRIAMCINOLONE ACETONIDE
  13. LORAZEPAM 1 MG TAB [Concomitant]
  14. NORCO 10/325 TAB [Concomitant]
  15. SILVADENE 1% CREAM [Concomitant]

REACTIONS (1)
  - Disease progression [None]
